FAERS Safety Report 6911106-7 (Version None)
Quarter: 2010Q3

REPORT INFORMATION
  Report Type: 
  Country: None (occurrence: None)
  Receive Date: 20100806
  Receipt Date: 20100728
  Transmission Date: 20110219
  Serious: Yes (Hospitalization)
  Sender: FDA-Public Use
  Company Number: US-JNJFOC-20100708634

PATIENT
  Sex: Male
  Weight: 51 kg

DRUGS (3)
  1. INFLIXIMAB, RECOMBINANT [Suspect]
     Indication: CROHN'S DISEASE
     Route: 042
  2. INFLIXIMAB, RECOMBINANT [Suspect]
     Route: 042
  3. METRONIDAZOLE [Concomitant]

REACTIONS (5)
  - CROHN'S DISEASE [None]
  - DECREASED APPETITE [None]
  - DISEASE PROGRESSION [None]
  - DYSPHAGIA [None]
  - OROPHARYNGEAL PAIN [None]
